FAERS Safety Report 6166697-3 (Version None)
Quarter: 2009Q2

REPORT INFORMATION
  Report Type: 
  Country: None (occurrence: None)
  Receive Date: 20090424
  Receipt Date: 20090413
  Transmission Date: 20091009
  Serious: Yes (Death, Hospitalization)
  Sender: FDA-Public Use
  Company Number: US-PFIZER INC-2009157184

PATIENT
  Sex: Female
  Weight: 96.599 kg

DRUGS (2)
  1. DILANTIN [Suspect]
     Indication: CONVULSION
     Dosage: 100 MG, 1X/DAY
     Dates: start: 20020101, end: 20020101
  2. PHENYTOIN [Suspect]
     Indication: CONVULSION
     Dosage: 250 MG, UNK
     Dates: start: 20020101, end: 20020101

REACTIONS (1)
  - STEVENS-JOHNSON SYNDROME [None]
